FAERS Safety Report 15800126 (Version 1)
Quarter: 2019Q1

REPORT INFORMATION
  Report Type: Spontaneous
  Country: CN (occurrence: CN)
  Receive Date: 20190108
  Receipt Date: 20190108
  Transmission Date: 20190417
  Serious: Yes (Life-Threatening, Hospitalization)
  Sender: FDA-Public Use
  Company Number: PHHY2019CN000847

PATIENT
  Age: 60 Year
  Sex: Male
  Weight: 90 kg

DRUGS (17)
  1. DOXOFYLLINE [Concomitant]
     Active Substance: DOXOFYLLINE
     Indication: PRODUCT USED FOR UNKNOWN INDICATION
     Dosage: 0.2 G, UNK
     Route: 065
     Dates: start: 20181217, end: 20181224
  2. PIPERACILLIN W/SULBACTAM [Concomitant]
     Active Substance: PIPERACILLIN\SULBACTAM
     Indication: PRODUCT USED FOR UNKNOWN INDICATION
     Dosage: 1.5 G, Q8H
     Route: 041
     Dates: start: 20181217, end: 20181224
  3. COMPOUND AMINO ACID (18AA-II) [Concomitant]
     Indication: PRODUCT USED FOR UNKNOWN INDICATION
     Dosage: 250 MG, QD
     Route: 041
     Dates: start: 20181228, end: 20181231
  4. FUROSEMIDE. [Concomitant]
     Active Substance: FUROSEMIDE
     Indication: PRODUCT USED FOR UNKNOWN INDICATION
     Dosage: 40 MG, QOD, 20 MG TABLETS
     Route: 048
     Dates: start: 20181217, end: 20181219
  5. FUROSEMIDE. [Concomitant]
     Active Substance: FUROSEMIDE
     Dosage: 40 MG, QD, 20 MG TABLETS
     Route: 048
     Dates: start: 20181219, end: 20181224
  6. PHOSPHOCREATINE SODIUM [Concomitant]
     Active Substance: PHOSPHOCREATINE SODIUM
     Indication: PRODUCT USED FOR UNKNOWN INDICATION
     Dosage: 1 G, QD
     Route: 065
     Dates: start: 20181217, end: 20181222
  7. FUROSEMIDE. [Concomitant]
     Active Substance: FUROSEMIDE
     Indication: PRODUCT USED FOR UNKNOWN INDICATION
     Dosage: 20 MG, Q8H
     Route: 042
     Dates: start: 20181228, end: 20181230
  8. INSULIN [Concomitant]
     Active Substance: INSULIN NOS
     Indication: PRODUCT USED FOR UNKNOWN INDICATION
     Dosage: 6 U, UNK
     Route: 065
  9. ENTRESTO [Suspect]
     Active Substance: SACUBITRIL\VALSARTAN
     Indication: CARDIAC FAILURE CHRONIC
     Dosage: 50 MG, BID
     Route: 048
     Dates: start: 20181223, end: 20181226
  10. RHODIOLA ROSEA [Concomitant]
     Active Substance: HERBALS
     Indication: PRODUCT USED FOR UNKNOWN INDICATION
     Dosage: UNK
     Route: 065
     Dates: start: 20181228, end: 20181231
  11. FUROSEMIDE. [Concomitant]
     Active Substance: FUROSEMIDE
     Dosage: 20 MG, BID 20 MG TABLETS
     Route: 048
     Dates: start: 20181230, end: 20181231
  12. HEPARIN SODIUM. [Concomitant]
     Active Substance: HEPARIN SODIUM
     Indication: PRODUCT USED FOR UNKNOWN INDICATION
     Dosage: 0.4 ML, QD
     Route: 065
     Dates: start: 20181228, end: 20181231
  13. PANTOPRAZOLE [Concomitant]
     Active Substance: PANTOPRAZOLE
     Indication: PRODUCT USED FOR UNKNOWN INDICATION
     Dosage: 40 MG, QD
     Route: 065
     Dates: start: 20181228, end: 20181231
  14. COENZYME [Concomitant]
     Active Substance: UBIDECARENONE
     Indication: PRODUCT USED FOR UNKNOWN INDICATION
     Dosage: 0.2 MG, UNK, 2 NEEDLES
     Route: 065
     Dates: start: 20181228, end: 20181231
  15. PHOSPHOCREATINE SODIUM [Concomitant]
     Active Substance: PHOSPHOCREATINE SODIUM
     Dosage: 1 G, QD
     Route: 065
     Dates: start: 20181222, end: 20181224
  16. POTASSIUM CHLORIDE. [Concomitant]
     Active Substance: POTASSIUM CHLORIDE
     Indication: PRODUCT USED FOR UNKNOWN INDICATION
     Dosage: 7 ML, UNK
     Route: 065
     Dates: start: 20181228, end: 20181231
  17. ALANYL GLUTAMINE [Concomitant]
     Active Substance: ALANYL GLUTAMINE
     Indication: PRODUCT USED FOR UNKNOWN INDICATION
     Dosage: 20 MG, UNK
     Route: 065
     Dates: start: 20181228, end: 20181231

REACTIONS (26)
  - Cardiogenic shock [Unknown]
  - Alanine aminotransferase increased [Unknown]
  - Blood creatinine increased [Unknown]
  - Chest discomfort [Recovering/Resolving]
  - Metabolic acidosis [Unknown]
  - Neutrophil percentage increased [Unknown]
  - Red blood cell count increased [Unknown]
  - Haemoglobin increased [Unknown]
  - Aspartate aminotransferase increased [Unknown]
  - Dyspnoea [Recovering/Resolving]
  - Dizziness [Unknown]
  - Hypotension [Unknown]
  - Feeling abnormal [Unknown]
  - Hepatic function abnormal [Unknown]
  - Angioedema [Unknown]
  - Renal impairment [Unknown]
  - Cyanosis [Recovering/Resolving]
  - Oxygen saturation decreased [Unknown]
  - Lung infection [Unknown]
  - Respiratory failure [Unknown]
  - Fatigue [Unknown]
  - Blood calcium decreased [Unknown]
  - Lymphocyte percentage increased [Unknown]
  - N-terminal prohormone brain natriuretic peptide increased [Unknown]
  - White blood cell count decreased [Unknown]
  - Blood urea increased [Unknown]

NARRATIVE: CASE EVENT DATE: 20181227
